FAERS Safety Report 21805261 (Version 2)
Quarter: 2023Q1

REPORT INFORMATION
  Report Type: Spontaneous
  Country: ES (occurrence: ES)
  Receive Date: 20230102
  Receipt Date: 20230109
  Transmission Date: 20230417
  Serious: Yes (Other)
  Sender: FDA-Public Use
  Company Number: ES-AUROBINDO-AUR-APL-2022-056246

PATIENT
  Age: 30 Year
  Sex: Male

DRUGS (2)
  1. SERTRALINE [Suspect]
     Active Substance: SERTRALINE HYDROCHLORIDE
     Indication: Product used for unknown indication
     Dosage: 25 MILLIGRAM
     Route: 065
  2. RISPERIDONE [Concomitant]
     Active Substance: RISPERIDONE
     Indication: Product used for unknown indication
     Dosage: 1 MILLIGRAM (FOR THE LAST 10 YEARS)
     Route: 065

REACTIONS (12)
  - Serotonin syndrome [Recovered/Resolved]
  - Loss of consciousness [Recovered/Resolved]
  - Urinary retention [Recovered/Resolved]
  - Toxicity to various agents [Recovered/Resolved]
  - Illness [Recovered/Resolved]
  - Hyperhidrosis [Recovered/Resolved]
  - Tachycardia [Recovered/Resolved]
  - Pyrexia [Recovered/Resolved]
  - Mutism [Recovered/Resolved]
  - Behaviour disorder [Recovered/Resolved]
  - Confusional state [Recovered/Resolved]
  - Neutrophilia [Recovered/Resolved]
